FAERS Safety Report 10732709 (Version 1)
Quarter: 2015Q1

REPORT INFORMATION
  Report Type: Spontaneous
  Country: US (occurrence: None)
  Receive Date: 20150120
  Receipt Date: 20150120
  Transmission Date: 20150721
  Serious: Yes (Other)
  Sender: FDA-Public Use
  Company Number: INT_00656_2015

PATIENT
  Age: 43 Year
  Sex: Male

DRUGS (2)
  1. CISPLATIN (HQ SPECIALTY) [Suspect]
     Active Substance: CISPLATIN
     Indication: TESTIS CANCER
     Dosage: DF
  2. ETOPOSIDE. [Suspect]
     Active Substance: ETOPOSIDE
     Indication: TESTIS CANCER
     Dosage: DF

REACTIONS (8)
  - Vision blurred [None]
  - Thrombocytopenia [None]
  - Dyspnoea exertional [None]
  - Anaemia [None]
  - Headache [None]
  - Visual acuity reduced [None]
  - Retinal haemorrhage [None]
  - Palpitations [None]
